FAERS Safety Report 25513329 (Version 1)
Quarter: 2025Q3

REPORT INFORMATION
  Report Type: Spontaneous
  Country: JP (occurrence: JP)
  Receive Date: 20250703
  Receipt Date: 20250703
  Transmission Date: 20251021
  Serious: Yes (Hospitalization)
  Sender: BAUSCH AND LOMB
  Company Number: JP-BAUSCH-BH-2025-014100

PATIENT
  Age: 7 Decade
  Sex: Female

DRUGS (1)
  1. TETRABENAZINE [Suspect]
     Active Substance: TETRABENAZINE
     Indication: Product used for unknown indication
     Route: 048

REACTIONS (1)
  - Hospitalisation [Unknown]
